FAERS Safety Report 15901530 (Version 1)
Quarter: 2019Q1

REPORT INFORMATION
  Report Type: Spontaneous
  Country: US (occurrence: US)
  Receive Date: 20190201
  Receipt Date: 20190201
  Transmission Date: 20190417
  Serious: Yes (Other)
  Sender: FDA-Public Use
  Company Number: None

PATIENT
  Age: 58 Year
  Sex: Female
  Weight: 67.5 kg

DRUGS (4)
  1. TRAZODONE [Concomitant]
     Active Substance: TRAZODONE HYDROCHLORIDE
     Dates: start: 20100101
  2. TOPIRIMATE [Concomitant]
     Active Substance: TOPIRAMATE
     Dates: start: 20091231
  3. ESCITALOPRAM [Concomitant]
     Active Substance: ESCITALOPRAM OXALATE
     Dates: start: 20100101
  4. XTAMPZA ER [Suspect]
     Active Substance: OXYCODONE
     Indication: NEURALGIA
     Route: 048
     Dates: start: 20181004, end: 20181101

REACTIONS (7)
  - Depression [None]
  - Face injury [None]
  - Onychoclasis [None]
  - Epistaxis [None]
  - Somnolence [None]
  - Fall [None]
  - Contusion [None]

NARRATIVE: CASE EVENT DATE: 20181015
